FAERS Safety Report 5212737-5 (Version None)
Quarter: 2006Q4

REPORT INFORMATION
  Report Type: 
  Country: None (occurrence: None)
  Receive Date: 20061115
  Receipt Date: 20060821
  Transmission Date: 20070319
  Serious: No
  Sender: FDA-Public Use
  Company Number: 200615239BWH

PATIENT
  Age: 48 Year
  Sex: Female

DRUGS (2)
  1. NEXAVAR [Suspect]
     Indication: BILE DUCT CANCER
     Dosage: 400 MG, BID ORAL; 200 MG BID; ORAL
     Route: 048
     Dates: start: 20060801, end: 20060821
  2. NEXAVAR [Suspect]
     Indication: BILE DUCT CANCER
     Dosage: 400 MG, BID ORAL; 200 MG BID; ORAL
     Route: 048
     Dates: start: 20060701

REACTIONS (1)
  - PALMAR-PLANTAR ERYTHRODYSAESTHESIA SYNDROME [None]
